FAERS Safety Report 16407930 (Version 1)
Quarter: 2019Q2

REPORT INFORMATION
  Report Type: Spontaneous
  Country: US (occurrence: US)
  Receive Date: 20190610
  Receipt Date: 20190610
  Transmission Date: 20190711
  Serious: Yes (Hospitalization, Other)
  Sender: FDA-Public Use
  Company Number: US-BRISTOL-MYERS SQUIBB COMPANY-BMS-2019-054240

PATIENT
  Sex: Female

DRUGS (1)
  1. ELIQUIS [Suspect]
     Active Substance: APIXABAN
     Indication: CEREBROVASCULAR ACCIDENT PROPHYLAXIS
     Dosage: 2.5 MILLIGRAM, BID
     Route: 048

REACTIONS (11)
  - Prescribed underdose [Unknown]
  - Skin laceration [Unknown]
  - Injury [Unknown]
  - Blood creatinine increased [Unknown]
  - Aphasia [Recovered/Resolved]
  - Fall [Unknown]
  - Dehydration [Unknown]
  - Transient ischaemic attack [Unknown]
  - Cardiac failure [Recovering/Resolving]
  - Haemorrhage [Unknown]
  - Dysgraphia [Recovered/Resolved]
